FAERS Safety Report 7993913-5 (Version None)
Quarter: 2011Q4

REPORT INFORMATION
  Report Type: 
  Country: None (occurrence: None)
  Receive Date: 20111215
  Receipt Date: 20111208
  Transmission Date: 20120403
  Serious: Yes (Other)
  Sender: FDA-Public Use
  Company Number: COL_10292_2011

PATIENT
  Sex: Female

DRUGS (3)
  1. CHLORHEXIDINE GLUCONATE [Suspect]
     Indication: POSTOPERATIVE WOUND INFECTION
     Dosage: (10 ML BID ORAL)
     Route: 048
     Dates: start: 20111025, end: 20111103
  2. CHLORHEXIDINE GLUCONATE [Suspect]
     Indication: MUCOSAL INFLAMMATION
     Dosage: (10 ML BID ORAL)
     Route: 048
     Dates: start: 20111025, end: 20111103
  3. CHLORHEXIDINE GLUCONATE [Suspect]
     Indication: GINGIVITIS
     Dosage: (10 ML BID ORAL)
     Route: 048
     Dates: start: 20111025, end: 20111103

REACTIONS (7)
  - ORAL PAIN [None]
  - TRANSMISSION OF AN INFECTIOUS AGENT VIA A MEDICINAL PRODUCT [None]
  - PRODUCT QUALITY ISSUE [None]
  - ORAL BACTERIAL INFECTION [None]
  - MOUTH INJURY [None]
  - SUTURE RELATED COMPLICATION [None]
  - IMPAIRED WORK ABILITY [None]
